FAERS Safety Report 4438830-2 (Version None)
Quarter: 2004Q3

REPORT INFORMATION
  Report Type: 
  Country: None (occurrence: None)
  Receive Date: 20040901
  Receipt Date: 20040824
  Transmission Date: 20050211
  Serious: Yes (Death)
  Sender: FDA-Public Use
  Company Number: JP-JNJFOC-20040806922

PATIENT
  Age: 55 Year
  Sex: Male

DRUGS (4)
  1. RISPERDAL [Suspect]
     Indication: DELUSION
     Route: 049
  2. FLUVOXAMINE MALEATE [Concomitant]
     Route: 049
  3. CHLORPROMAZINE-PROMETHAZINE COMBINED DRUG [Concomitant]
     Route: 049
  4. PERPHENAZINE MALEATE [Concomitant]
     Route: 049

REACTIONS (5)
  - ACUTE MYOCARDIAL INFARCTION [None]
  - CARDIAC ARREST [None]
  - FATIGUE [None]
  - SUICIDAL IDEATION [None]
  - WEIGHT DECREASED [None]
